FAERS Safety Report 16558402 (Version 4)
Quarter: 2019Q3

REPORT INFORMATION
  Report Type: Spontaneous
  Country: JP (occurrence: JP)
  Receive Date: 20190711
  Receipt Date: 20190923
  Transmission Date: 20191004
  Serious: Yes (Hospitalization, Other)
  Sender: FDA-Public Use
  Company Number: JP-PFIZER INC-2019292305

PATIENT
  Age: 70 Year
  Sex: Female

DRUGS (4)
  1. IBRANCE [Suspect]
     Active Substance: PALBOCICLIB
     Indication: BREAST CANCER METASTATIC
     Dosage: 125 MG, DAILY
  2. IBRANCE [Suspect]
     Active Substance: PALBOCICLIB
     Dosage: 100 MG, UNK
  3. FEMARA [Concomitant]
     Active Substance: LETROZOLE
     Dosage: UNK
  4. IBRANCE [Suspect]
     Active Substance: PALBOCICLIB
     Dosage: 75 MG, CYCLIC (2 WEEKS-ON AND 3-WEEKS-OFF REGIMEN)

REACTIONS (4)
  - Ilium fracture [Unknown]
  - Alopecia [Unknown]
  - Neutrophil count decreased [Recovering/Resolving]
  - Anaemia [Unknown]
